FAERS Safety Report 5813671-X (Version None)
Quarter: 2008Q3

REPORT INFORMATION
  Report Type: 
  Country: None (occurrence: None)
  Receive Date: 20080717
  Receipt Date: 20080707
  Transmission Date: 20090109
  Serious: Yes (Other)
  Sender: FDA-Public Use
  Company Number: B0527904A

PATIENT
  Sex: Male

DRUGS (1)
  1. BECOTIDE [Suspect]
     Indication: ASTHMA
     Route: 065

REACTIONS (3)
  - ASTHMA [None]
  - DYSGEUSIA [None]
  - THROAT IRRITATION [None]
